FAERS Safety Report 9148037 (Version 2)
Quarter: 2013Q1

REPORT INFORMATION
  Report Type: Spontaneous
  Country: JP (occurrence: JP)
  Receive Date: 20130308
  Receipt Date: 20130326
  Transmission Date: 20140127
  Serious: Yes (Other)
  Sender: FDA-Public Use
  Company Number: JP-009507513-1303JPN002888

PATIENT
  Age: 76 Year
  Sex: Male

DRUGS (3)
  1. BETAMETHASONE SODIUM PHOSPHATE [Suspect]
     Dosage: UNK UNK, QID
     Route: 047
     Dates: start: 201108
  2. DICLOFENAC SODIUM [Suspect]
     Dosage: UNK UNK, QID
     Route: 047
     Dates: start: 201108
  3. CELECOX [Suspect]
     Route: 048

REACTIONS (2)
  - Corneal perforation [Recovering/Resolving]
  - Ulcerative keratitis [Recovering/Resolving]
